FAERS Safety Report 11666301 (Version 1)
Quarter: 2015Q4

REPORT INFORMATION
  Report Type: Spontaneous
  Country: US (occurrence: US)
  Receive Date: 20151027
  Receipt Date: 20151027
  Transmission Date: 20160304
  Serious: No
  Sender: FDA-Public Use
  Company Number: US-009507513-1510USA005177

PATIENT
  Age: 23 Year
  Sex: Female

DRUGS (2)
  1. NUVARING [Suspect]
     Active Substance: ETHINYL ESTRADIOL\ETONOGESTREL
     Indication: CONTRACEPTION
     Dosage: CONTINUOUSLY, TAKE RING OUT AFTER 3 WEEKS AND PUT NEW ONE IN
     Route: 067
  2. NUVARING [Suspect]
     Active Substance: ETHINYL ESTRADIOL\ETONOGESTREL
     Dosage: USING CORRECTLY
     Route: 067
     Dates: start: 201211

REACTIONS (1)
  - Inappropriate schedule of drug administration [Unknown]
